FAERS Safety Report 12712698 (Version 5)
Quarter: 2017Q2

REPORT INFORMATION
  Report Type: Spontaneous
  Country: US (occurrence: US)
  Receive Date: 20160902
  Receipt Date: 20170412
  Transmission Date: 20170830
  Serious: Yes (Hospitalization, Other)
  Sender: FDA-Public Use
  Company Number: US-009507513-1609USA001080

PATIENT
  Sex: Female
  Weight: 134.24 kg

DRUGS (2)
  1. NUVARING [Suspect]
     Active Substance: ETHINYL ESTRADIOL\ETONOGESTREL
     Indication: MENSTRUATION IRREGULAR
     Dosage: 1 DF, QM
     Route: 067
     Dates: start: 201402, end: 201409
  2. NUVARING [Suspect]
     Active Substance: ETHINYL ESTRADIOL\ETONOGESTREL
     Indication: CONTRACEPTION

REACTIONS (12)
  - Pulmonary embolism [Unknown]
  - Gait disturbance [Unknown]
  - Pulmonary embolism [Unknown]
  - Paraesthesia [Unknown]
  - Off label use [Unknown]
  - Genital herpes [Unknown]
  - Pulmonary mass [Unknown]
  - Vision blurred [Unknown]
  - Stress [Unknown]
  - Depression [Unknown]
  - Maternal exposure before pregnancy [Unknown]
  - Menstruation delayed [Unknown]

NARRATIVE: CASE EVENT DATE: 201406
